FAERS Safety Report 9745371 (Version 1)
Quarter: 2013Q4

REPORT INFORMATION
  Report Type: Spontaneous
  Country: US (occurrence: None)
  Receive Date: 20131206
  Receipt Date: 20131206
  Transmission Date: 20140711
  Serious: Yes (Disabling, Other)
  Sender: FDA-Public Use
  Company Number: None

PATIENT
  Age: 45 Year
  Sex: Female
  Weight: 68.04 kg

DRUGS (1)
  1. CYMBALTA [Suspect]
     Indication: FIBROMYALGIA
     Dosage: 1 PILL ONCE DAILY
     Dates: start: 20131010, end: 20131204

REACTIONS (15)
  - Depression [None]
  - Suicidal ideation [None]
  - Paraesthesia [None]
  - Abasia [None]
  - Impaired driving ability [None]
  - Fatigue [None]
  - Anxiety [None]
  - Amnesia [None]
  - Vertigo [None]
  - Nausea [None]
  - Lethargy [None]
  - Headache [None]
  - Hyperhidrosis [None]
  - Pruritus [None]
  - Skin burning sensation [None]
